FAERS Safety Report 12843688 (Version 1)
Quarter: 2016Q4

REPORT INFORMATION
  Report Type: Report from Study
  Country: US (occurrence: US)
  Receive Date: 20161013
  Receipt Date: 20161013
  Transmission Date: 20170207
  Serious: Yes (Other)
  Sender: FDA-Public Use
  Company Number: US-MYLANLABS-2016M1043961

PATIENT

DRUGS (1)
  1. PENTOBARBITAL. [Suspect]
     Active Substance: PENTOBARBITAL
     Indication: STATUS EPILEPTICUS
     Route: 050

REACTIONS (4)
  - Deep vein thrombosis [Unknown]
  - Neuropathy peripheral [Unknown]
  - Lactic acidosis [Unknown]
  - Urinary tract infection [Unknown]
